FAERS Safety Report 19053737 (Version 1)
Quarter: 2021Q1

REPORT INFORMATION
  Report Type: Spontaneous
  Country: US (occurrence: US)
  Receive Date: 20210324
  Receipt Date: 20210324
  Transmission Date: 20210420
  Serious: No
  Sender: FDA-Public Use
  Company Number: US-GW PHARMA-202103USGW01219

PATIENT

DRUGS (1)
  1. EPIDIOLEX [Suspect]
     Active Substance: CANNABIDIOL
     Indication: LENNOX-GASTAUT SYNDROME
     Dosage: 900 MILLIGRAM, QD (400 MG BY MOUTH EVERY MORNING. GIVE 500 MG BY MOUTH EVERY EVENING)
     Route: 048
     Dates: start: 202102

REACTIONS (2)
  - Headache [Unknown]
  - Dizziness [Unknown]

NARRATIVE: CASE EVENT DATE: 2021
